FAERS Safety Report 15848960 (Version 1)
Quarter: 2019Q1

REPORT INFORMATION
  Report Type: Spontaneous
  Country: GB (occurrence: GB)
  Receive Date: 20190121
  Receipt Date: 20190121
  Transmission Date: 20190417
  Serious: Yes (Death, Other)
  Sender: FDA-Public Use
  Company Number: GB-PFIZER INC-2019022769

PATIENT
  Age: 22 Year
  Sex: Male

DRUGS (4)
  1. KETAMINE HCL [Suspect]
     Active Substance: KETAMINE HYDROCHLORIDE
     Dosage: UNK
  2. GAMMA-HYDROXYBUTYRATE [Suspect]
     Active Substance: 4-HYDROXYBUTANOIC ACID
     Dosage: UNK
  3. MEPHEDRONE [Suspect]
     Active Substance: MEPHEDRONE
     Dosage: UNK
  4. ECSTASY [Suspect]
     Active Substance: MIDOMAFETAMINE
     Dosage: UNK

REACTIONS (4)
  - Toxicity to various agents [Fatal]
  - Circulatory collapse [Unknown]
  - Malaise [Unknown]
  - Abnormal behaviour [Unknown]
